FAERS Safety Report 25630993 (Version 1)
Quarter: 2025Q3

REPORT INFORMATION
  Report Type: Spontaneous
  Country: EU (occurrence: EU)
  Receive Date: 20250801
  Receipt Date: 20250801
  Transmission Date: 20251020
  Serious: Yes (Other)
  Sender: ACCORD
  Company Number: None

PATIENT
  Age: 70 Year
  Sex: Male
  Weight: 106 kg

DRUGS (10)
  1. FLUOROURACIL [Suspect]
     Active Substance: FLUOROURACIL
     Indication: Rectal cancer
     Dates: start: 20250605, end: 20250607
  2. BILASTINE [Concomitant]
     Active Substance: BILASTINE
     Indication: Urticaria chronic
  3. IRINOTECAN [Concomitant]
     Active Substance: IRINOTECAN
     Indication: Rectal cancer
     Dates: start: 20250605, end: 20250605
  4. OXALIPLATIN [Concomitant]
     Active Substance: OXALIPLATIN
     Indication: Rectal cancer
     Dates: start: 20250521, end: 20250521
  5. LEUCOVORIN CALCIUM [Concomitant]
     Active Substance: LEUCOVORIN CALCIUM
     Indication: Rectal cancer
     Dates: start: 20250605, end: 20250605
  6. ONDANSETRON [Concomitant]
     Active Substance: ONDANSETRON
     Indication: Prophylaxis of nausea and vomiting
     Dates: start: 20250605, end: 20250605
  7. PREDNISONE [Concomitant]
     Active Substance: PREDNISONE
     Indication: Prophylaxis of nausea and vomiting
     Dates: start: 20250605, end: 20250605
  8. APREPITANT [Concomitant]
     Active Substance: APREPITANT
     Indication: Prophylaxis of nausea and vomiting
     Dates: start: 20250606, end: 20250607
  9. APREPITANT [Concomitant]
     Active Substance: APREPITANT
     Indication: Prophylaxis of nausea and vomiting
     Dates: start: 20250605, end: 20250605
  10. OXALIPLATIN [Concomitant]
     Active Substance: OXALIPLATIN
     Indication: Rectal cancer
     Dates: start: 20250505, end: 20250505

REACTIONS (1)
  - Submaxillary gland enlargement [Not Recovered/Not Resolved]

NARRATIVE: CASE EVENT DATE: 20250608
